FAERS Safety Report 9236863 (Version 1)
Quarter: 2013Q2

REPORT INFORMATION
  Report Type: Spontaneous
  Country: TR (occurrence: None)
  Receive Date: 20130415
  Receipt Date: 20130415
  Transmission Date: 20140414
  Serious: Yes (Other)
  Sender: FDA-Public Use
  Company Number: FK201301127

PATIENT
  Age: 6 Year
  Sex: Male

DRUGS (1)
  1. VANCOMYCIN [Suspect]
     Indication: MENINGITIS BACTERIAL

REACTIONS (5)
  - Toxicity to various agents [None]
  - Drug administration error [None]
  - Nephropathy toxic [None]
  - Renal tubular necrosis [None]
  - Abdominal pain [None]
